FAERS Safety Report 17539083 (Version 3)
Quarter: 2020Q3

REPORT INFORMATION
  Report Type: Spontaneous
  Country: US (occurrence: US)
  Receive Date: 20200313
  Receipt Date: 20200826
  Transmission Date: 20201102
  Serious: Yes (Other)
  Sender: FDA-Public Use
  Company Number: US-GILEAD-2020-0454531

PATIENT
  Age: 65 Year
  Sex: Male
  Weight: 70.16 kg

DRUGS (13)
  1. STRIBILD [Suspect]
     Active Substance: COBICISTAT\ELVITEGRAVIR\EMTRICITABINE\TENOFOVIR DISOPROXIL FUMARATE
     Indication: HIV INFECTION
     Dosage: UNK
     Route: 048
     Dates: start: 201209, end: 201708
  2. GENVOYA [Concomitant]
     Active Substance: COBICISTAT\ELVITEGRAVIR\EMTRICITABINE\TENOFOVIR ALAFENAMIDE FUMARATE
  3. OMEPRAZOLE. [Concomitant]
     Active Substance: OMEPRAZOLE
  4. FAMOTIDINE. [Concomitant]
     Active Substance: FAMOTIDINE
  5. PRAVASTATIN. [Concomitant]
     Active Substance: PRAVASTATIN
  6. ACETAMINOPHEN. [Concomitant]
     Active Substance: ACETAMINOPHEN
  7. AMOXICILLIN. [Concomitant]
     Active Substance: AMOXICILLIN
  8. SIMVASTATIN. [Concomitant]
     Active Substance: SIMVASTATIN
  9. ASPIRIN 81 [Concomitant]
     Active Substance: ASPIRIN
  10. ESOMEPRAZOLE. [Concomitant]
     Active Substance: ESOMEPRAZOLE MAGNESIUM
  11. ATRIPLA [Suspect]
     Active Substance: EFAVIRENZ\EMTRICITABINE\TENOFOVIR DISOPROXIL FUMARATE
     Indication: HIV INFECTION
     Dosage: UNK
     Route: 048
     Dates: start: 200907, end: 201209
  12. RANITIDINE. [Concomitant]
     Active Substance: RANITIDINE
  13. PENICILLIN B [Concomitant]
     Active Substance: PHENETICILLIN

REACTIONS (9)
  - Economic problem [Unknown]
  - Bone density decreased [Not Recovered/Not Resolved]
  - Fracture [Not Recovered/Not Resolved]
  - Osteoarthritis [Not Recovered/Not Resolved]
  - Emotional distress [Unknown]
  - Anxiety [Unknown]
  - Osteoporosis [Not Recovered/Not Resolved]
  - Pain [Unknown]
  - Anhedonia [Unknown]

NARRATIVE: CASE EVENT DATE: 2015
